FAERS Safety Report 15243633 (Version 1)
Quarter: 2018Q3

REPORT INFORMATION
  Report Type: Spontaneous
  Country: US (occurrence: US)
  Receive Date: 20180806
  Receipt Date: 20180806
  Transmission Date: 20181010
  Serious: Yes (Other)
  Sender: FDA-Public Use
  Company Number: US-BAYER-2018-146998

PATIENT
  Age: 8 Year
  Sex: Male

DRUGS (4)
  1. DESLORATADINE. [Suspect]
     Active Substance: DESLORATADINE
     Indication: HYPERSENSITIVITY
     Dosage: UNK
     Route: 048
  2. DESLORATADINE. [Suspect]
     Active Substance: DESLORATADINE
     Indication: NASAL CONGESTION
  3. CLARITIN [Suspect]
     Active Substance: LORATADINE
     Indication: HYPERSENSITIVITY
     Dosage: UNK
     Dates: start: 2018, end: 2018
  4. CLARITIN [Suspect]
     Active Substance: LORATADINE
     Indication: NASAL CONGESTION

REACTIONS (2)
  - Adverse event [Unknown]
  - Autism spectrum disorder [Recovering/Resolving]
